FAERS Safety Report 5808554-5 (Version None)
Quarter: 2008Q3

REPORT INFORMATION
  Report Type: 
  Country: None (occurrence: None)
  Receive Date: 20080702
  Receipt Date: 20080219
  Transmission Date: 20090109
  Serious: Yes (Other)
  Sender: FDA-Public Use
  Company Number: US-WYE-H02716808

PATIENT
  Age: 86 Year
  Sex: Female
  Weight: 63.56 kg

DRUGS (3)
  1. ADVIL [Suspect]
     Indication: ARTHRALGIA
     Dosage: 1-2 CAPSULES DAILY, ORAL
     Route: 048
     Dates: start: 20080217, end: 20080218
  2. NORVASC [Concomitant]
  3. MICARDIS [Concomitant]

REACTIONS (4)
  - BLOOD PRESSURE INCREASED [None]
  - CONDITION AGGRAVATED [None]
  - FEELING ABNORMAL [None]
  - HEART RATE INCREASED [None]
